FAERS Safety Report 22652401 (Version 1)
Quarter: 2023Q2

REPORT INFORMATION
  Report Type: Spontaneous
  Country: US (occurrence: US)
  Receive Date: 20230628
  Receipt Date: 20230628
  Transmission Date: 20230722
  Serious: No
  Sender: FDA-Public Use
  Company Number: US-ASTELLAS-2023US015243

PATIENT
  Sex: Male

DRUGS (1)
  1. PADCEV [Suspect]
     Active Substance: ENFORTUMAB VEDOTIN-EJFV
     Indication: Bladder cancer
     Dosage: 90 MG, CYCLIC (DAYS 1 AND 8 OF A 21 DAY CYCLE)
     Route: 042
     Dates: start: 202205, end: 20230510

REACTIONS (1)
  - Product temperature excursion issue [Unknown]
